FAERS Safety Report 8007700-5 (Version None)
Quarter: 2011Q4

REPORT INFORMATION
  Report Type: 
  Country: None (occurrence: None)
  Receive Date: 20111227
  Receipt Date: 20110330
  Transmission Date: 20120403
  Serious: No
  Sender: FDA-Public Use
  Company Number: US-ABBOTT-11P-163-0701583-00

PATIENT
  Sex: Male

DRUGS (9)
  1. LIPITOR [Concomitant]
     Indication: PRODUCT USED FOR UNKNOWN INDICATION
     Dosage: 10 MG DAILY
  2. HYDROXYCHLOROQUINE [Concomitant]
     Indication: PRODUCT USED FOR UNKNOWN INDICATION
     Dosage: 200 MG DAILY
  3. TOPROL-XL [Concomitant]
     Indication: PRODUCT USED FOR UNKNOWN INDICATION
     Dosage: 50 MG DAILY
  4. CELEBREX [Concomitant]
     Indication: PRODUCT USED FOR UNKNOWN INDICATION
     Dosage: 100 MG DAILY
  5. LUPRON DEPOT [Suspect]
     Dates: start: 20110201
  6. COZAAR [Concomitant]
     Indication: PRODUCT USED FOR UNKNOWN INDICATION
     Dosage: 50 MG DAILY
  7. COENZYME Q10 [Concomitant]
     Indication: PRODUCT USED FOR UNKNOWN INDICATION
  8. COUMADIN [Concomitant]
     Indication: PRODUCT USED FOR UNKNOWN INDICATION
     Dosage: 5 MG DAILY
  9. LUPRON DEPOT [Suspect]
     Indication: PROSTATE CANCER
     Dates: start: 20101129

REACTIONS (3)
  - DRUG INEFFECTIVE [None]
  - PROSTATIC SPECIFIC ANTIGEN INCREASED [None]
  - BLOOD TESTOSTERONE INCREASED [None]
